FAERS Safety Report 10476712 (Version 1)
Quarter: 2014Q3

REPORT INFORMATION
  Report Type: Report from Study
  Country: US (occurrence: US)
  Receive Date: 20140925
  Receipt Date: 20140925
  Transmission Date: 20150326
  Serious: Yes (Hospitalization, Other)
  Sender: FDA-Public Use
  Company Number: US-ALEXION PHARMACEUTICALS INC-A201203214

PATIENT
  Sex: Female

DRUGS (1)
  1. SOLIRIS [Suspect]
     Active Substance: ECULIZUMAB
     Indication: PAROXYSMAL NOCTURNAL HAEMOGLOBINURIA
     Dosage: UNK
     Route: 042

REACTIONS (11)
  - Dyspnoea [Unknown]
  - Catheter site swelling [Recovering/Resolving]
  - Cellulitis [Unknown]
  - Embolism [Unknown]
  - Device related infection [Recovering/Resolving]
  - Quality of life decreased [Not Recovered/Not Resolved]
  - Anxiety [Recovered/Resolved]
  - Fungal infection [Unknown]
  - Pain in extremity [Not Recovered/Not Resolved]
  - Depression [Recovered/Resolved]
  - Fatigue [Unknown]

NARRATIVE: CASE EVENT DATE: 20121016
